FAERS Safety Report 5612087-9 (Version None)
Quarter: 2008Q1

REPORT INFORMATION
  Report Type: 
  Country: None (occurrence: None)
  Receive Date: 20080128
  Receipt Date: 20080118
  Transmission Date: 20080703
  Serious: Yes (Other)
  Sender: FDA-Public Use
  Company Number: GXKR2007IT10908

PATIENT
  Age: 19 Year
  Sex: Male

DRUGS (1)
  1. CLOZAPIN HEXAL (NGX) (CLOZAPINE) UNKNOWN [Suspect]
     Indication: SCHIZOPHRENIA
     Dosage: 400 MG, QD, ORAL
     Route: 048
     Dates: start: 20071023, end: 20071102

REACTIONS (3)
  - EOSINOPHILIA [None]
  - PERICARDIAL EFFUSION [None]
  - PERICARDITIS [None]
